FAERS Safety Report 13534144 (Version 4)
Quarter: 2019Q4

REPORT INFORMATION
  Report Type: Spontaneous
  Country: US (occurrence: US)
  Receive Date: 20170510
  Receipt Date: 20191219
  Transmission Date: 20200122
  Serious: Yes (Other)
  Sender: FDA-Public Use
  Company Number: US-BRISTOL-MYERS SQUIBB COMPANY-BMS-2017-038880

PATIENT
  Sex: Male
  Weight: 79.38 kg

DRUGS (6)
  1. VYNDAQEL [Suspect]
     Active Substance: TAFAMIDIS MEGLUMINE
     Indication: PRODUCT USED FOR UNKNOWN INDICATION
     Dosage: 80 MILLIGRAM, QD
     Route: 048
     Dates: start: 201910
  2. LASIX [Concomitant]
     Active Substance: FUROSEMIDE
     Indication: CARDIAC AMYLOIDOSIS
     Dosage: 40 MILLIGRAM, BID
     Route: 065
     Dates: start: 201906
  3. KLOR-CON M20 [Concomitant]
     Active Substance: POTASSIUM CHLORIDE
     Indication: CARDIAC AMYLOIDOSIS
     Dosage: UNK
     Route: 065
     Dates: start: 201909
  4. ELIQUIS [Suspect]
     Active Substance: APIXABAN
     Indication: CEREBROVASCULAR ACCIDENT PROPHYLAXIS
     Dosage: 5 MILLIGRAM, BID
     Route: 048
     Dates: start: 201904
  5. ELIQUIS [Suspect]
     Active Substance: APIXABAN
     Indication: CARDIAC AMYLOIDOSIS
     Route: 065
  6. VYNDAQEL [Suspect]
     Active Substance: TAFAMIDIS MEGLUMINE
     Indication: CARDIAC AMYLOIDOSIS
     Dosage: 420 MILLIGRAM, QD
     Route: 048

REACTIONS (2)
  - Cardiac disorder [Unknown]
  - Headache [Unknown]
